FAERS Safety Report 13132571 (Version 1)
Quarter: 2017Q1

REPORT INFORMATION
  Report Type: Spontaneous
  Country: US (occurrence: US)
  Receive Date: 20170120
  Receipt Date: 20170120
  Transmission Date: 20170428
  Serious: Yes (Other)
  Sender: FDA-Public Use
  Company Number: US-CLINIGEN GROUP PLC/ CLINIGEN HEALTHCARE LTD-US-CLGN-17-00031

PATIENT
  Age: 17 Year
  Sex: Male

DRUGS (8)
  1. METHOTREXATE. [Concomitant]
     Active Substance: METHOTREXATE
     Indication: PROPHYLAXIS AGAINST GRAFT VERSUS HOST DISEASE
  2. METHYLPREDNISONE [Concomitant]
     Active Substance: METHYLPREDNISOLONE
     Indication: HISTIOCYTOSIS HAEMATOPHAGIC
  3. TACROLIMUS. [Concomitant]
     Active Substance: TACROLIMUS
     Indication: PROPHYLAXIS AGAINST GRAFT VERSUS HOST DISEASE
  4. IMMUNOGLOBULINE [Concomitant]
     Indication: HISTIOCYTOSIS HAEMATOPHAGIC
     Route: 042
  5. FOSCARNET?SODIUM [Suspect]
     Active Substance: FOSCARNET SODIUM
     Indication: CYTOMEGALOVIRUS INFECTION
  6. METHYLPREDNISONE [Concomitant]
     Active Substance: METHYLPREDNISOLONE
     Indication: CYTOMEGALOVIRUS INFECTION
  7. FOSCARNET?SODIUM [Suspect]
     Active Substance: FOSCARNET SODIUM
     Indication: HISTIOCYTOSIS HAEMATOPHAGIC
  8. IMMUNOGLOBULINE [Concomitant]
     Indication: CYTOMEGALOVIRUS INFECTION

REACTIONS (4)
  - Off label use [Unknown]
  - Acute respiratory failure [Unknown]
  - Venoocclusive liver disease [Unknown]
  - Acute kidney injury [Unknown]
